FAERS Safety Report 9618253 (Version 2)
Quarter: 2013Q4

REPORT INFORMATION
  Report Type: Spontaneous
  Country: US (occurrence: US)
  Receive Date: 20131014
  Receipt Date: 20131014
  Transmission Date: 20140711
  Serious: Yes (Other)
  Sender: FDA-Public Use
  Company Number: US-BIOGENIDEC-2013BI083360

PATIENT
  Age: 55 Year
  Sex: Female

DRUGS (8)
  1. TECFIDERA [Suspect]
     Indication: MULTIPLE SCLEROSIS
     Route: 048
     Dates: start: 2013
  2. NADOLOL [Concomitant]
  3. PREVACID [Concomitant]
  4. AMPYRA [Concomitant]
     Indication: MULTIPLE SCLEROSIS
     Route: 048
  5. TYLENOL EX-STR [Concomitant]
  6. FUROSEMIDE [Concomitant]
  7. CVS IBUPROFEN [Concomitant]
  8. LEXAPRO [Concomitant]

REACTIONS (4)
  - Cholecystectomy [Unknown]
  - Weight decreased [Unknown]
  - Nausea [Unknown]
  - Diarrhoea [Unknown]
